FAERS Safety Report 7816725-1 (Version None)
Quarter: 2011Q4

REPORT INFORMATION
  Report Type: 
  Country: None (occurrence: None)
  Receive Date: 20111017
  Receipt Date: 20111011
  Transmission Date: 20120403
  Serious: Yes (Hospitalization)
  Sender: FDA-Public Use
  Company Number: US-PFIZER INC-2011243106

PATIENT
  Age: 57 Year
  Sex: Male

DRUGS (1)
  1. SUTENT [Suspect]
     Indication: HEPATIC CANCER METASTATIC
     Dosage: 37.5 MG, 1X/DAY, 4 WKS ON 2 WKS OFF
     Route: 048

REACTIONS (2)
  - PULMONARY EMBOLISM [None]
  - DYSPNOEA [None]
